FAERS Safety Report 6244010-0 (Version None)
Quarter: 2009Q2

REPORT INFORMATION
  Report Type: 
  Country: None (occurrence: None)
  Receive Date: 20090623
  Receipt Date: 20090609
  Transmission Date: 20091009
  Serious: Yes (Hospitalization, Disabling)
  Sender: FDA-Public Use
  Company Number: 2009-02301

PATIENT
  Age: 63 Year
  Sex: Female

DRUGS (5)
  1. VELCADE [Suspect]
     Indication: DRUG USE FOR UNKNOWN INDICATION
     Dosage: 2 MG, INTRAVENOUS
     Route: 042
     Dates: end: 20080311
  2. MADOPAR      (LEVODOPA, BENSERAZIDE HYDROCHLORIDE) [Suspect]
     Indication: DRUG USE FOR UNKNOWN INDICATION
     Dosage: 250 MG, ORAL
     Route: 048
  3. ALLOPURINOL [Concomitant]
  4. DEXAMETHASONE [Concomitant]
  5. LANSOPRAZOLE [Concomitant]

REACTIONS (4)
  - CONDITION AGGRAVATED [None]
  - DRUG INEFFECTIVE [None]
  - DRUG INTERACTION [None]
  - PARKINSON'S DISEASE [None]
